FAERS Safety Report 8251948-1 (Version None)
Quarter: 2012Q2

REPORT INFORMATION
  Report Type: 
  Country: None (occurrence: None)
  Receive Date: 20120402
  Receipt Date: 20120326
  Transmission Date: 20120825
  Serious: Yes (Hospitalization, Other)
  Sender: FDA-Public Use
  Company Number: FR-ABBOTT-12P-056-0919011-00

PATIENT
  Age: 58 Year
  Sex: Male

DRUGS (8)
  1. DIPRIVAN [Suspect]
     Indication: ANAESTHESIA
     Route: 042
     Dates: start: 20120319, end: 20120319
  2. CEFOXITIN SODIUM [Suspect]
     Indication: ANTIBIOTIC PROPHYLAXIS
     Route: 042
     Dates: start: 20120319, end: 20120319
  3. DESFLURANE [Suspect]
     Indication: ANAESTHESIA
     Route: 055
     Dates: start: 20120319, end: 20120319
  4. SEVOFLURANE [Suspect]
     Indication: ANAESTHESIA
     Route: 055
     Dates: start: 20120319, end: 20120319
  5. ROCURONIUM BROMIDE [Suspect]
     Indication: ANAESTHESIA
     Route: 042
     Dates: start: 20120319, end: 20120319
  6. ATARAX [Concomitant]
     Indication: PREMEDICATION
     Dates: start: 20120319, end: 20120319
  7. SUFENTANIL CITRATE [Suspect]
     Indication: ANAESTHESIA
     Route: 042
     Dates: start: 20120319, end: 20120319
  8. ESCITALOPRAM OXALATE [Concomitant]
     Indication: DEPRESSION

REACTIONS (3)
  - BRONCHOSPASM [None]
  - SHOCK [None]
  - RASH GENERALISED [None]
